FAERS Safety Report 17881105 (Version 5)
Quarter: 2021Q2

REPORT INFORMATION
  Report Type: Report from Study
  Country: CA (occurrence: CA)
  Receive Date: 20200610
  Receipt Date: 20210401
  Transmission Date: 20210717
  Serious: Yes (Hospitalization, Other)
  Sender: FDA-Public Use
  Company Number: CA-TAKEDA-2020TUS025496

PATIENT
  Age: 67 Year
  Sex: Male

DRUGS (3)
  1. PREDNISONE. [Concomitant]
     Active Substance: PREDNISONE
     Dosage: UNK
  2. VEDOLIZUMAB [Suspect]
     Active Substance: VEDOLIZUMAB
     Dosage: 300 MILLIGRAM
     Route: 042
  3. VEDOLIZUMAB [Suspect]
     Active Substance: VEDOLIZUMAB
     Indication: CROHN^S DISEASE
     Dosage: 300 MILLIGRAM
     Route: 042
     Dates: start: 20200120

REACTIONS (8)
  - COVID-19 [Unknown]
  - Delirium [Not Recovered/Not Resolved]
  - Decreased appetite [Unknown]
  - Gait inability [Unknown]
  - Pulmonary embolism [Unknown]
  - Renal failure [Unknown]
  - Dehydration [Unknown]
  - Bronchitis [Unknown]

NARRATIVE: CASE EVENT DATE: 20200513
